FAERS Safety Report 14549361 (Version 1)
Quarter: 2018Q1

REPORT INFORMATION
  Report Type: Spontaneous
  Country: US (occurrence: US)
  Receive Date: 20180219
  Receipt Date: 20180219
  Transmission Date: 20180509
  Serious: Yes (Other)
  Sender: FDA-Public Use
  Company Number: US-COLLEGIUM PHARMACEUTICAL, INC.-US-2018DEP000389

PATIENT

DRUGS (4)
  1. NUCYNTA ER [Suspect]
     Active Substance: TAPENTADOL HYDROCHLORIDE
     Indication: HEADACHE
     Dosage: 150 MG, BID
     Route: 048
     Dates: start: 2013
  2. NUCYNTA [Suspect]
     Active Substance: TAPENTADOL HYDROCHLORIDE
     Indication: HEADACHE
     Dosage: 100 MG, EVERY 4-5 HOURS
     Route: 048
     Dates: start: 2013
  3. NUCYNTA [Suspect]
     Active Substance: TAPENTADOL HYDROCHLORIDE
     Indication: MIGRAINE
  4. NUCYNTA ER [Suspect]
     Active Substance: TAPENTADOL HYDROCHLORIDE
     Indication: MIGRAINE

REACTIONS (5)
  - Loss of personal independence in daily activities [Not Recovered/Not Resolved]
  - Product distribution issue [Unknown]
  - Product use in unapproved indication [Unknown]
  - Medication error [Unknown]
  - Pain [Not Recovered/Not Resolved]

NARRATIVE: CASE EVENT DATE: 2013
